FAERS Safety Report 5546910-3 (Version None)
Quarter: 2007Q4

REPORT INFORMATION
  Report Type: 
  Country: None (occurrence: None)
  Receive Date: 20071211
  Receipt Date: 20071129
  Transmission Date: 20080405
  Serious: Yes (Death)
  Sender: FDA-Public Use
  Company Number: US-AMGEN-US219248

PATIENT
  Sex: Male

DRUGS (3)
  1. PROCRIT [Suspect]
     Indication: ANAEMIA OF MALIGNANT DISEASE
     Route: 065
     Dates: start: 20061025, end: 20061221
  2. IBUPROFEN [Concomitant]
  3. NORVASC [Concomitant]

REACTIONS (2)
  - DEATH [None]
  - HOSPITALISATION [None]
